FAERS Safety Report 15206967 (Version 2)
Quarter: 2018Q3

REPORT INFORMATION
  Report Type: Spontaneous
  Country: US (occurrence: US)
  Receive Date: 20180727
  Receipt Date: 20180822
  Transmission Date: 20181010
  Serious: No
  Sender: FDA-Public Use
  Company Number: US-BAYER-2018-137814

PATIENT

DRUGS (2)
  1. CLARITIN [Suspect]
     Active Substance: LORATADINE
     Indication: ARTHRALGIA
     Dosage: UNK
  2. CLARITIN [Suspect]
     Active Substance: LORATADINE
     Indication: MULTIPLE ALLERGIES

REACTIONS (3)
  - Product use in unapproved indication [Unknown]
  - Drug effective for unapproved indication [Unknown]
  - Off label use [Unknown]
